FAERS Safety Report 13543788 (Version 9)
Quarter: 2020Q4

REPORT INFORMATION
  Report Type: Spontaneous
  Country: GB (occurrence: GB)
  Receive Date: 20170515
  Receipt Date: 20201223
  Transmission Date: 20210113
  Serious: Yes (Other)
  Sender: FDA-Public Use
  Company Number: GB-BEH-2017080263

PATIENT
  Age: 25 Year
  Sex: Female
  Weight: 60 kg

DRUGS (4)
  1. RHOPHYLAC [Suspect]
     Active Substance: HUMAN RHO(D) IMMUNE GLOBULIN
     Indication: PROPHYLAXIS AGAINST RH ISOIMMUNISATION
     Dosage: 1500 IU, TOT
     Route: 030
     Dates: start: 20170420
  2. RHOPHYLAC [Suspect]
     Active Substance: HUMAN RHO(D) IMMUNE GLOBULIN
     Indication: PROPHYLAXIS AGAINST RH ISOIMMUNISATION
     Dosage: 1500 IU, TOT
     Route: 030
     Dates: start: 20170420
  3. RHOPHYLAC [Suspect]
     Active Substance: HUMAN RHO(D) IMMUNE GLOBULIN
     Dosage: 1500 IU, TOT
     Route: 030
     Dates: start: 20130910
  4. RHOPHYLAC [Suspect]
     Active Substance: HUMAN RHO(D) IMMUNE GLOBULIN
     Dosage: 1500 IU, TOT
     Route: 030
     Dates: start: 20130910

REACTIONS (8)
  - Syncope [Recovered/Resolved]
  - Dizziness [Recovered/Resolved]
  - Anaemia [Unknown]
  - Vomiting [Unknown]
  - Exposure during pregnancy [Recovered/Resolved]
  - Exposure during pregnancy [Unknown]
  - Dizziness [Recovered/Resolved]
  - Vomiting [Recovered/Resolved]

NARRATIVE: CASE EVENT DATE: 20130910
